FAERS Safety Report 6453916-9 (Version None)
Quarter: 2009Q4

REPORT INFORMATION
  Report Type: 
  Country: None (occurrence: None)
  Receive Date: 20091117
  Receipt Date: 20091106
  Transmission Date: 20100525
  Serious: Yes (Hospitalization, Other)
  Sender: FDA-Public Use
  Company Number: 230629J09USA

PATIENT
  Age: 60 Year
  Sex: Female
  Weight: 55 kg

DRUGS (11)
  1. REBIF [Suspect]
     Indication: MULTIPLE SCLEROSIS
     Dosage: 22 MCG, 3 IN 1 WEEKS, SUBCUTANEOUS
     Route: 058
     Dates: start: 20050520, end: 20090801
  2. REBIF [Suspect]
     Indication: MULTIPLE SCLEROSIS
     Dosage: 22 MCG, 3 IN 1 WEEKS, SUBCUTANEOUS
     Route: 058
     Dates: start: 20090101, end: 20090824
  3. HYDROCODONE (HYDROCODONE) [Concomitant]
  4. ALPRAZOLAM [Concomitant]
  5. BACLOFEN [Concomitant]
  6. CYMBALTA [Concomitant]
  7. PLAVIX [Concomitant]
  8. METOPROLOL (METOPROLOL) [Concomitant]
  9. SIMVASTATIN [Concomitant]
  10. ENALAPRIL MALEATE [Concomitant]
  11. CRESTOR [Concomitant]

REACTIONS (8)
  - ALOPECIA [None]
  - ARTHRITIS [None]
  - DIABETES MELLITUS [None]
  - DYSSTASIA [None]
  - FALL [None]
  - HIP FRACTURE [None]
  - OSTEOPOROSIS [None]
  - THYROID DISORDER [None]
